FAERS Safety Report 20583212 (Version 1)
Quarter: 2022Q1

REPORT INFORMATION
  Report Type: Spontaneous
  Country: US (occurrence: US)
  Receive Date: 20220311
  Receipt Date: 20220311
  Transmission Date: 20220423
  Serious: Yes (Other)
  Sender: FDA-Public Use
  Company Number: US-GLAXOSMITHKLINE-US2018APC240853

PATIENT
  Age: 26 Year
  Sex: Female
  Weight: 80 kg

DRUGS (8)
  1. LAMICTAL [Suspect]
     Active Substance: LAMOTRIGINE
     Indication: Epilepsy
     Dosage: 25 MG, QD
     Route: 048
     Dates: start: 2013
  2. LAMICTAL [Suspect]
     Active Substance: LAMOTRIGINE
     Dosage: 200 MG, QD
     Route: 048
  3. LAMICTAL [Suspect]
     Active Substance: LAMOTRIGINE
     Dosage: 600 MG, QD
     Route: 048
  4. LAMICTAL [Suspect]
     Active Substance: LAMOTRIGINE
     Dosage: 500 MG, QD
     Route: 048
  5. LAMICTAL [Suspect]
     Active Substance: LAMOTRIGINE
     Dosage: 400 MG, QD
     Route: 048
     Dates: start: 201705
  6. LAMICTAL [Suspect]
     Active Substance: LAMOTRIGINE
     Dosage: 4 DF, BID , 50 MG
     Route: 048
     Dates: start: 2018
  7. LAMICTAL [Suspect]
     Active Substance: LAMOTRIGINE
     Dosage: 3 DF, Z , IN THE MORNING
     Route: 048
     Dates: start: 2019
  8. KEPPRA [Suspect]
     Active Substance: LEVETIRACETAM
     Indication: Epilepsy
     Dosage: UNK

REACTIONS (15)
  - Petit mal epilepsy [Unknown]
  - Hallucination [Unknown]
  - Exposure during pregnancy [Unknown]
  - Live birth [Unknown]
  - Maternal exposure during breast feeding [Not Recovered/Not Resolved]
  - Hormone level abnormal [Unknown]
  - Drug level increased [Unknown]
  - Halo vision [Recovered/Resolved]
  - Gait disturbance [Recovered/Resolved]
  - Vomiting [Recovered/Resolved]
  - Intervertebral disc protrusion [Unknown]
  - Weight increased [Unknown]
  - Diarrhoea [Recovered/Resolved]
  - Panic attack [Unknown]
  - Drug ineffective [Unknown]

NARRATIVE: CASE EVENT DATE: 20160101
